FAERS Safety Report 16970708 (Version 1)
Quarter: 2019Q4

REPORT INFORMATION
  Report Type: Spontaneous
  Country: US (occurrence: US)
  Receive Date: 20191029
  Receipt Date: 20191029
  Transmission Date: 20200122
  Serious: Yes (Other)
  Sender: FDA-Public Use
  Company Number: US-TOLMAR, INC.-19US000813

PATIENT
  Age: 33 Year
  Sex: Female

DRUGS (2)
  1. ELIGARD [Suspect]
     Active Substance: LEUPROLIDE ACETATE
     Indication: ARTIFICIAL INSEMINATION
     Route: 065
  2. HUMAN CHORIONIC GONADOTROPIN [Suspect]
     Active Substance: GONADOTROPHIN, CHORIONIC
     Indication: ARTIFICIAL INSEMINATION

REACTIONS (2)
  - Contraindicated product administered [Unknown]
  - Luteinising unruptured follicle syndrome [Unknown]
